FAERS Safety Report 10489892 (Version 4)
Quarter: 2014Q4

REPORT INFORMATION
  Report Type: Report from Study
  Country: CN (occurrence: CN)
  Receive Date: 20141002
  Receipt Date: 20141030
  Transmission Date: 20150528
  Serious: Yes (Death, Hospitalization)
  Sender: FDA-Public Use
  Company Number: CN-BAYER-2014-101788

PATIENT
  Age: 54 Year
  Sex: Male
  Weight: 64 kg

DRUGS (11)
  1. THYMOPENTIN [Concomitant]
     Active Substance: THYMOPENTIN
     Indication: HEPATOCELLULAR CARCINOMA
     Dosage: 10 MG, QOD
     Dates: start: 20140526, end: 20140620
  2. REGORAFENIB [Suspect]
     Active Substance: REGORAFENIB
     Indication: HEPATOCELLULAR CARCINOMA
     Dosage: 160 MG DAILY
     Route: 048
     Dates: start: 20140620, end: 20140627
  3. ENTECAVIR. [Concomitant]
     Active Substance: ENTECAVIR
     Indication: HEPATITIS B
     Dosage: 0.5 MG DAILY
     Route: 048
     Dates: start: 20140328, end: 20140701
  4. ADEFOVIR DIPIVOXIL. [Concomitant]
     Active Substance: ADEFOVIR DIPIVOXIL
     Dosage: 10 MG DAILY
     Route: 048
     Dates: start: 20140620
  5. BICYCLOL [Concomitant]
     Dosage: 50 MG DAILY
     Route: 048
     Dates: start: 20140621
  6. CODEINE [Concomitant]
     Active Substance: CODEINE
     Dosage: UNK
     Route: 048
     Dates: start: 20140617
  7. RIBONUCLEIC ACID [Concomitant]
     Active Substance: RIBONUCLEIC ACID
     Indication: HEPATOCELLULAR CARCINOMA
     Dosage: 30 MG, QD
     Dates: start: 20140526, end: 20140615
  8. COENZYME COMPLEX [Concomitant]
     Active Substance: UNSPECIFIED INGREDIENT
     Indication: HEPATOCELLULAR CARCINOMA
     Dosage: 2 G, QD
     Dates: start: 20140526, end: 20140620
  9. GLUCOSE [Concomitant]
     Active Substance: DEXTROSE
     Indication: HEPATOCELLULAR CARCINOMA
     Dosage: 100 ML, QD
     Dates: start: 20140526, end: 20140615
  10. MAGNESIUM ISOGLYCYRRHIZINATE [Concomitant]
     Indication: HEPATOCELLULAR CARCINOMA
  11. GLUCOSE [Concomitant]
     Active Substance: DEXTROSE
     Indication: HEPATOCELLULAR CARCINOMA
     Dosage: 250 ML, UNK
     Dates: start: 20140526, end: 20140607

REACTIONS (2)
  - Jaundice [Recovered/Resolved]
  - Hepatic encephalopathy [Fatal]

NARRATIVE: CASE EVENT DATE: 20140627
